FAERS Safety Report 10510636 (Version 2)
Quarter: 2014Q4

REPORT INFORMATION
  Report Type: Spontaneous
  Country: JP (occurrence: None)
  Receive Date: 20141008
  Receipt Date: 20141103
  Transmission Date: 20150528
  Serious: Yes (Death)
  Sender: FDA-Public Use
  Company Number: JP-017221

PATIENT
  Age: 84 Year
  Sex: Male
  Weight: 50 kg

DRUGS (4)
  1. DEGARELIX (GONAX) (240 MG, 80 MG) [Suspect]
     Active Substance: DEGARELIX
     Indication: PROSTATE CANCER METASTATIC
     Route: 058
     Dates: start: 20130625, end: 20130625
  2. BICALUTAMIDE. [Concomitant]
     Active Substance: BICALUTAMIDE
  3. ZOMETA [Concomitant]
     Active Substance: ZOLEDRONIC ACID
  4. NESP [Concomitant]
     Active Substance: DARBEPOETIN ALFA

REACTIONS (1)
  - Death [None]

NARRATIVE: CASE EVENT DATE: 20131218
